FAERS Safety Report 5014263-5 (Version None)
Quarter: 2006Q2

REPORT INFORMATION
  Report Type: 
  Country: None (occurrence: None)
  Receive Date: 20060414
  Receipt Date: 20051216
  Transmission Date: 20061013
  Serious: No
  Sender: FDA-Public Use
  Company Number: 2005SP004425

PATIENT
  Age: 62 Year
  Sex: Female
  Weight: 61.2356 kg

DRUGS (1)
  1. LUNESTA [Suspect]
     Indication: INSOMNIA
     Dosage: 3 MG;HS;ORAL
     Route: 048
     Dates: start: 20050801, end: 20051215

REACTIONS (2)
  - DYSGEUSIA [None]
  - INSOMNIA [None]
